FAERS Safety Report 25178319 (Version 1)
Quarter: 2025Q2

REPORT INFORMATION
  Report Type: Spontaneous
  Country: US (occurrence: None)
  Receive Date: 20250407
  Receipt Date: 20250407
  Transmission Date: 20250717
  Serious: Yes (Death)
  Sender: FDA-CTU
  Company Number: None

PATIENT
  Age: 64 Year
  Sex: Male

DRUGS (10)
  1. REPATHA [Suspect]
     Active Substance: EVOLOCUMAB
     Dates: start: 20241212
  2. LIPITOR [Suspect]
     Active Substance: ATORVASTATIN CALCIUM
     Dates: start: 20220623, end: 20241124
  3. BIKTARVY [Suspect]
     Active Substance: BICTEGRAVIR SODIUM\EMTRICITABINE\TENOFOVIR ALAFENAMIDE FUMARATE
     Dates: start: 20220413, end: 20221027
  4. DELSTRIGO [Suspect]
     Active Substance: DORAVIRINE\LAMIVUDINE\TENOFOVIR DISOPROXIL FUMARATE
     Dates: start: 20221115
  5. LISINOPRIL [Suspect]
     Active Substance: LISINOPRIL
     Dates: start: 20230131
  6. LISINOPRIL [Suspect]
     Active Substance: LISINOPRIL
     Dates: start: 20221115, end: 20231106
  7. OZEMPIC [Suspect]
     Active Substance: SEMAGLUTIDE
     Dates: start: 20230615, end: 20231003
  8. OZEMPIC [Suspect]
     Active Substance: SEMAGLUTIDE
     Dates: start: 20231024, end: 20231202
  9. TESTOSTERONE CYPIONATE [Suspect]
     Active Substance: TESTOSTERONE CYPIONATE
     Dates: start: 20221129, end: 20241104
  10. VITAMIN D2 [Suspect]
     Active Substance: ERGOCALCIFEROL
     Dates: start: 20240617, end: 20240702

REACTIONS (1)
  - Death [None]

NARRATIVE: CASE EVENT DATE: 20250406
